FAERS Safety Report 13817471 (Version 2)
Quarter: 2018Q1

REPORT INFORMATION
  Report Type: Spontaneous
  Country: US (occurrence: US)
  Receive Date: 20170731
  Receipt Date: 20180210
  Transmission Date: 20180508
  Serious: Yes (Other)
  Sender: FDA-Public Use
  Company Number: US-TEVA-792591USA

PATIENT
  Age: 82 Year
  Sex: Male

DRUGS (3)
  1. MEDROXYPROGESTERONE [Suspect]
     Active Substance: MEDROXYPROGESTERONE
     Indication: TRANSGENDER HORMONAL THERAPY
     Dosage: 5 MG, 1 IN 1 DAY
     Route: 065
     Dates: start: 201505
  2. ESTRADIOL VALERATE. [Suspect]
     Active Substance: ESTRADIOL VALERATE
     Dosage: .5 MILLIGRAM DAILY;
     Route: 065
     Dates: start: 201309, end: 201505
  3. ESTRADIOL VALERATE. [Suspect]
     Active Substance: ESTRADIOL VALERATE
     Indication: TRANSGENDER HORMONAL THERAPY
     Dosage: 10 MG/WEEK
     Route: 030
     Dates: start: 201505

REACTIONS (3)
  - Cerebrovascular accident [Unknown]
  - Cerebral infarction [Unknown]
  - Product use issue [Unknown]

NARRATIVE: CASE EVENT DATE: 201601
